FAERS Safety Report 22349622 (Version 1)
Quarter: 2023Q2

REPORT INFORMATION
  Report Type: Spontaneous
  Country: IT (occurrence: None)
  Receive Date: 20230522
  Receipt Date: 20230522
  Transmission Date: 20230722
  Serious: Yes (Hospitalization)
  Sender: FDA-Public Use
  Company Number: 2023A111799

PATIENT
  Age: 23 Year
  Sex: Male

DRUGS (9)
  1. QUETIAPINE [Suspect]
     Active Substance: QUETIAPINE
     Dosage: 1 BOX (100 MG EACH).
     Route: 048
     Dates: start: 20230505, end: 20230505
  2. BIPERIDEN [Suspect]
     Active Substance: BIPERIDEN
     Dosage: 1 BOX (4 MG EACH).
     Route: 048
     Dates: start: 20230505, end: 20230505
  3. VENLAFAXINE [Suspect]
     Active Substance: VENLAFAXINE HYDROCHLORIDE
     Dosage: 1 BOX (37.5 MG).
     Route: 048
     Dates: start: 20230505, end: 20230505
  4. IBUPROFEN [Suspect]
     Active Substance: IBUPROFEN
     Dosage: 1 BOX (400 MG EACH).
     Route: 048
     Dates: start: 20230505, end: 20230505
  5. CETIRIZINE\PSEUDOEPHEDRINE [Suspect]
     Active Substance: CETIRIZINE\PSEUDOEPHEDRINE
     Dosage: 1 BOX (5 MG AND 120 MG EACH).
     Route: 048
     Dates: start: 20230505, end: 20230505
  6. KETOPROFEN LYSINE [Suspect]
     Active Substance: KETOPROFEN LYSINE
     Route: 048
     Dates: start: 20230505
  7. ACETAMINOPHEN [Suspect]
     Active Substance: ACETAMINOPHEN
     Dosage: 1 BOX (500 MG).
     Route: 048
     Dates: start: 20230505, end: 20230505
  8. AMOXICILLIN [Suspect]
     Active Substance: AMOXICILLIN
     Dosage: 1 BOX (1 GRAM PC).
     Route: 048
     Dates: start: 20230505, end: 20230505
  9. RIVOTRIL [Suspect]
     Active Substance: CLONAZEPAM
     Dosage: 2 BOXES (2 MG).
     Route: 048
     Dates: start: 20230505, end: 20230505

REACTIONS (6)
  - Intentional overdose [Unknown]
  - Coma [Not Recovered/Not Resolved]
  - Suicide attempt [Unknown]
  - Bezoar [Unknown]
  - Sinus tachycardia [Not Recovered/Not Resolved]
  - Hypotension [Not Recovered/Not Resolved]

NARRATIVE: CASE EVENT DATE: 20230505
